FAERS Safety Report 14321249 (Version 1)
Quarter: 2017Q4

REPORT INFORMATION
  Report Type: Spontaneous
  Country: CN (occurrence: CN)
  Receive Date: 20171223
  Receipt Date: 20171223
  Transmission Date: 20180321
  Serious: Yes (Other)
  Sender: FDA-Public Use
  Company Number: CN-CIPLA LTD.-2017CN24494

PATIENT

DRUGS (7)
  1. GEMCITABINE [Suspect]
     Active Substance: GEMCITABINE\GEMCITABINE HYDROCHLORIDE
     Indication: ALVEOLAR RHABDOMYOSARCOMA
     Dosage: UNK, 4 CYCLES
     Route: 065
     Dates: start: 20150930, end: 20151206
  2. CISPLATIN. [Suspect]
     Active Substance: CISPLATIN
     Indication: ALVEOLAR RHABDOMYOSARCOMA
     Dosage: UNK, 4 CYCLES
     Route: 065
     Dates: start: 20150930, end: 20151206
  3. IFOSFAMIDE. [Suspect]
     Active Substance: IFOSFAMIDE
     Indication: ALVEOLAR RHABDOMYOSARCOMA
     Dosage: UNK, 2 CYCLICAL
     Route: 065
     Dates: start: 20160107, end: 20160424
  4. DACARBAZINE. [Suspect]
     Active Substance: DACARBAZINE
     Indication: ALVEOLAR RHABDOMYOSARCOMA
     Dosage: UNK, 4 CYCLICAL
     Route: 065
     Dates: start: 20160107
  5. MESNA. [Suspect]
     Active Substance: MESNA
     Indication: ALVEOLAR RHABDOMYOSARCOMA
     Dosage: UNK, 2 CYCLICAL
     Route: 065
     Dates: start: 20160107, end: 20160424
  6. BEVACIZUMAB. [Suspect]
     Active Substance: BEVACIZUMAB
     Indication: ALVEOLAR RHABDOMYOSARCOMA
     Dosage: UNK
     Route: 065
     Dates: start: 2015, end: 2015
  7. EPIRUBICIN [Suspect]
     Active Substance: EPIRUBICIN
     Indication: ALVEOLAR RHABDOMYOSARCOMA
     Dosage: UNK, 4 CYCLICAL
     Route: 065
     Dates: start: 20160107

REACTIONS (4)
  - Disease progression [Unknown]
  - Leukopenia [Unknown]
  - Therapy partial responder [Unknown]
  - Thrombocytopenia [Unknown]

NARRATIVE: CASE EVENT DATE: 20151206
